FAERS Safety Report 21522358 (Version 1)
Quarter: 2022Q4

REPORT INFORMATION
  Report Type: Spontaneous
  Country: KR (occurrence: KR)
  Receive Date: 20221028
  Receipt Date: 20221028
  Transmission Date: 20230112
  Serious: Yes (Death, Hospitalization)
  Sender: FDA-Public Use
  Company Number: KR-STRIDES ARCOLAB LIMITED-2022SP014196

PATIENT
  Age: 57 Year
  Sex: Male

DRUGS (5)
  1. DEXAMETHASONE [Suspect]
     Active Substance: DEXAMETHASONE
     Indication: T-cell lymphoma
     Dosage: UNK, CYCLICAL (SMILE REGIMEN)
     Route: 065
  2. ETOPOSIDE [Suspect]
     Active Substance: ETOPOSIDE
     Indication: T-cell lymphoma
     Dosage: UNK, CYCLICAL, (SMILE REGIMEN)
     Route: 065
  3. METHOTREXATE [Suspect]
     Active Substance: METHOTREXATE
     Indication: T-cell lymphoma
     Dosage: UNK, CYCLICAL, (SMILE REGIMEN)
     Route: 065
  4. IFOSFAMIDE [Suspect]
     Active Substance: IFOSFAMIDE
     Indication: T-cell lymphoma
     Dosage: UNK, CYCLICAL, (SMILE REGIMEN)
     Route: 065
  5. ASPARAGINASE [Suspect]
     Active Substance: ASPARAGINASE
     Indication: T-cell lymphoma
     Dosage: (6000 IU.M2), CYCLICAL, (SMILE REGIMEN)
     Route: 065

REACTIONS (3)
  - Pneumonia [Fatal]
  - Asthenia [Unknown]
  - Off label use [Unknown]
